FAERS Safety Report 6431629-7 (Version None)
Quarter: 2009Q4

REPORT INFORMATION
  Report Type: 
  Country: None (occurrence: None)
  Receive Date: 20091103
  Receipt Date: 20091027
  Transmission Date: 20100525
  Serious: Yes (Death)
  Sender: FDA-Public Use
  Company Number: 2009JP006535

PATIENT
  Age: 46 Year
  Sex: Male

DRUGS (3)
  1. PROGRAF [Suspect]
     Indication: LUNG TRANSPLANT
  2. MYCOPHENOLATE MOFETIL (MYCOPHENOLATE MOFETIL) FORMULATION [Concomitant]
  3. PREDNISOLONE (PREDNISOLONE) FORMULATION [Concomitant]

REACTIONS (1)
  - ASPERGILLOSIS [None]
